FAERS Safety Report 7058161-4 (Version None)
Quarter: 2010Q4

REPORT INFORMATION
  Report Type: 
  Country: None (occurrence: None)
  Receive Date: 20101022
  Receipt Date: 20100915
  Transmission Date: 20110411
  Serious: Yes (Other)
  Sender: FDA-Public Use
  Company Number: JP-WYE-H18264010

PATIENT
  Age: 56 Year
  Sex: Male

DRUGS (2)
  1. ARTANE [Suspect]
     Indication: PARKINSON'S DISEASE
     Route: 048
  2. CARBIDOPA AND LEVODOPA [Concomitant]
     Indication: PARKINSON'S DISEASE
     Dosage: UNKNOWN
     Route: 048

REACTIONS (2)
  - DEMENTIA WITH LEWY BODIES [None]
  - SKIN ODOUR ABNORMAL [None]
